FAERS Safety Report 4640606-8 (Version None)
Quarter: 2005Q2

REPORT INFORMATION
  Report Type: 
  Country: None (occurrence: None)
  Receive Date: 20050419
  Receipt Date: 20050404
  Transmission Date: 20051028
  Serious: Yes (Hospitalization)
  Sender: FDA-Public Use
  Company Number: 2005AP02079

PATIENT

DRUGS (2)
  1. IRESSA [Suspect]
     Indication: COLORECTAL CANCER
  2. CAPECITABINE [Suspect]
     Indication: COLORECTAL CANCER

REACTIONS (4)
  - COUGH [None]
  - PYREXIA [None]
  - SKIN INFECTION [None]
  - SKIN TOXICITY [None]
